FAERS Safety Report 6207043-6 (Version None)
Quarter: 2009Q2

REPORT INFORMATION
  Report Type: 
  Country: None (occurrence: None)
  Receive Date: 20090528
  Receipt Date: 20090522
  Transmission Date: 20091009
  Serious: Yes (Life-Threatening)
  Sender: FDA-Public Use
  Company Number: JP-ASTRAZENECA-2009AC01329

PATIENT
  Age: 44 Year
  Sex: Male

DRUGS (8)
  1. SEROQUEL [Suspect]
     Indication: SCHIZOPHRENIA
     Route: 048
  2. SEROQUEL [Suspect]
     Route: 048
  3. SEROQUEL [Suspect]
     Route: 048
  4. LULLAN [Concomitant]
     Route: 048
  5. RISPERDAL [Concomitant]
     Route: 048
  6. AKIRIDEN [Concomitant]
     Route: 048
  7. BENZALIN [Concomitant]
     Route: 048
  8. SENEVACUL [Concomitant]
     Route: 048

REACTIONS (2)
  - CARDIAC ARREST [None]
  - ELECTROCARDIOGRAM QT PROLONGED [None]
